FAERS Safety Report 12579614 (Version 1)
Quarter: 2016Q3

REPORT INFORMATION
  Report Type: Spontaneous
  Country: DE (occurrence: JP)
  Receive Date: 20160721
  Receipt Date: 20160721
  Transmission Date: 20161109
  Serious: Yes (Other)
  Sender: FDA-Public Use
  Company Number: JP-FRI-1000086137

PATIENT
  Age: 59 Year
  Sex: Female

DRUGS (2)
  1. ACAMPROSATE [Suspect]
     Active Substance: ACAMPROSATE
     Indication: ALCOHOLISM
     Dosage: 1998 MG
     Route: 048
     Dates: start: 201404
  2. CYANAMIDE [Suspect]
     Active Substance: CYANAMIDE
     Indication: ALCOHOLISM
     Dosage: 50 TO 200 MG
     Route: 048
     Dates: start: 201404

REACTIONS (1)
  - Drug eruption [Recovered/Resolved]
